FAERS Safety Report 22339758 (Version 1)
Quarter: 2023Q2

REPORT INFORMATION
  Report Type: Spontaneous
  Country: US (occurrence: None)
  Receive Date: 20230517
  Receipt Date: 20230517
  Transmission Date: 20230721
  Serious: Yes (Other)
  Sender: FDA-Public Use
  Company Number: None

PATIENT
  Sex: Female
  Weight: 85.73 kg

DRUGS (2)
  1. ULTOMIRIS [Suspect]
     Active Substance: RAVULIZUMAB-CWVZ
     Indication: Myasthenia gravis
     Dosage: OTHER FREQUENCY : INDUCTION DOSE;?
     Route: 042
     Dates: start: 20230503, end: 20230517
  2. ULTOMIRIS [Concomitant]
     Active Substance: RAVULIZUMAB-CWVZ

REACTIONS (6)
  - Back pain [None]
  - Pain in extremity [None]
  - Hypoaesthesia oral [None]
  - Hypoaesthesia oral [None]
  - Headache [None]
  - Dizziness [None]

NARRATIVE: CASE EVENT DATE: 20230517
